FAERS Safety Report 6870966-9 (Version None)
Quarter: 2010Q3

REPORT INFORMATION
  Report Type: 
  Country: None (occurrence: None)
  Receive Date: 20100723
  Receipt Date: 20100716
  Transmission Date: 20110219
  Serious: Yes (Hospitalization)
  Sender: FDA-Public Use
  Company Number: US-ASTRAZENECA-2010SE33381

PATIENT
  Age: 50 Year
  Sex: Male

DRUGS (5)
  1. SEROQUEL [Suspect]
     Indication: SCHIZOAFFECTIVE DISORDER
     Dosage: 300 MG 3 TABLETS AT BED TIME
     Route: 048
  2. TRILAFON [Interacting]
     Indication: SCHIZOAFFECTIVE DISORDER
     Route: 048
  3. KALETRA [Interacting]
     Indication: HIV INFECTION
     Dosage: 200/50 MG TWO TABLETS TWICE DAILY
  4. TRIZIVIR [Interacting]
     Indication: HIV INFECTION
     Dosage: 300/150/300 MG TWO TABLETS DAILY
  5. COGENTIN [Concomitant]
     Indication: EXTRAPYRAMIDAL DISORDER
     Route: 048

REACTIONS (2)
  - DRUG INTERACTION [None]
  - PRIAPISM [None]
